FAERS Safety Report 24357288 (Version 1)
Quarter: 2024Q3

REPORT INFORMATION
  Report Type: Spontaneous
  Country: US (occurrence: US)
  Receive Date: 20240924
  Receipt Date: 20240924
  Transmission Date: 20241016
  Serious: Yes (Hospitalization, Other)
  Sender: HIKMA
  Company Number: US-MLMSERVICE-20240430-PI040956-00323-1

PATIENT
  Age: 38 Year
  Sex: Female

DRUGS (8)
  1. BUDESONIDE [Suspect]
     Active Substance: BUDESONIDE
     Indication: Chronic rhinosinusitis with nasal polyps
     Dosage: LOCAL IMMUNOSUPPRESSION OF THE TISSUE
     Route: 065
     Dates: start: 202208
  2. PREDNISONE [Suspect]
     Active Substance: PREDNISONE
     Dosage: 10 MILLIGRAM, QD, TAPER
     Route: 048
     Dates: start: 202208, end: 202208
  3. PREDNISONE [Suspect]
     Active Substance: PREDNISONE
     Dosage: 20 MILLIGRAM, QD, TAPER
     Route: 048
     Dates: start: 202208, end: 202208
  4. PREDNISONE [Suspect]
     Active Substance: PREDNISONE
     Dosage: 30 MILLIGRAM, QD, TAPER
     Route: 048
     Dates: start: 202208, end: 202208
  5. PREDNISONE [Suspect]
     Active Substance: PREDNISONE
     Indication: Chronic rhinosinusitis with nasal polyps
     Dosage: 40 MILLIGRAM, QD
     Route: 048
     Dates: start: 202208, end: 202208
  6. PREDNISONE [Suspect]
     Active Substance: PREDNISONE
     Dosage: 8 MILLIGRAM INTRA-OPERATIVELY
     Route: 042
     Dates: start: 202208
  7. TRIAMCINOLONE [Suspect]
     Active Substance: TRIAMCINOLONE
     Indication: Chronic rhinosinusitis with nasal polyps
     Dosage: FOAM
     Route: 045
     Dates: start: 202208
  8. DECADRON [Concomitant]
     Active Substance: DEXAMETHASONE
     Indication: Chronic rhinosinusitis with nasal polyps
     Dosage: INTRA-OPERATIVELY
     Route: 042

REACTIONS (5)
  - Sinusitis fungal [Recovered/Resolved]
  - Pupillary reflex impaired [Recovered/Resolved]
  - Orbital infection [Recovered/Resolved]
  - Mucormycosis [Recovered/Resolved]
  - Systemic mycosis [Recovered/Resolved]

NARRATIVE: CASE EVENT DATE: 20220812
